FAERS Safety Report 25214189 (Version 3)
Quarter: 2025Q2

REPORT INFORMATION
  Report Type: Spontaneous
  Country: DE (occurrence: DE)
  Receive Date: 20250418
  Receipt Date: 20250605
  Transmission Date: 20250717
  Serious: Yes (Disabling)
  Sender: PFIZER
  Company Number: DE-PFIZER INC-202500078744

PATIENT
  Age: 75 Year
  Sex: Female
  Weight: 52 kg

DRUGS (4)
  1. EXEMESTANE [Suspect]
     Active Substance: EXEMESTANE
     Indication: Breast cancer female
     Dosage: 25 MG, 1X/DAY
     Route: 048
     Dates: start: 20210101, end: 20250410
  2. EXEMESTANE [Suspect]
     Active Substance: EXEMESTANE
     Dates: start: 20210105, end: 20220411
  3. ELIQUIS [Concomitant]
     Active Substance: APIXABAN
     Indication: Transient ischaemic attack
     Dosage: 5 MG, 2X/DAY
  4. METOPROLOL [Concomitant]
     Active Substance: METOPROLOL
     Indication: Atrial fibrillation
     Dosage: UNK, 1X/DAY

REACTIONS (1)
  - Normal tension glaucoma [Recovered/Resolved with Sequelae]

NARRATIVE: CASE EVENT DATE: 20210506
